FAERS Safety Report 9141974 (Version 1)
Quarter: 2013Q1

REPORT INFORMATION
  Report Type: Spontaneous
  Country: US (occurrence: US)
  Receive Date: 20130305
  Receipt Date: 20130305
  Transmission Date: 20140127
  Serious: No
  Sender: FDA-Public Use
  Company Number: US-AMGEN-USASP2013012232

PATIENT
  Age: 14 Year
  Sex: Male

DRUGS (2)
  1. ENBREL [Suspect]
     Indication: PSORIASIS
     Dosage: 25 MG, 2 TIMES/WK
  2. INFLIXIMAB [Concomitant]
     Dosage: 5 MG/KG AT 0,2,6 WEEKS AND THEN EVERY 8 WEEKS

REACTIONS (1)
  - Drug ineffective [Unknown]
